FAERS Safety Report 10166935 (Version 1)
Quarter: 2014Q2

REPORT INFORMATION
  Report Type: Spontaneous
  Country: DE (occurrence: None)
  Receive Date: 20140508
  Receipt Date: 20140508
  Transmission Date: 20141212
  Serious: Yes (Hospitalization)
  Sender: FDA-Public Use
  Company Number: FK201401626

PATIENT
  Age: 73 Year
  Sex: Female
  Weight: 66 kg

DRUGS (1)
  1. PACLITAXEL (MANUFACTURER UNKNOWN) (PACLITAXEL) (PACLITAXEL) [Suspect]
     Indication: OVARIAN CANCER
     Dosage: CYCLICAL  ?(NOT OTHERWISE SPECIFIED)
     Route: 042
     Dates: start: 20140317

REACTIONS (2)
  - Flushing [None]
  - Hypertensive crisis [None]
